FAERS Safety Report 14638201 (Version 1)
Quarter: 2018Q1

REPORT INFORMATION
  Report Type: Spontaneous
  Country: US (occurrence: US)
  Receive Date: 20180314
  Receipt Date: 20180314
  Transmission Date: 20180509
  Serious: Yes (Life-Threatening, Disabling)
  Sender: FDA-Public Use
  Company Number: None

PATIENT
  Age: 73 Year
  Sex: Male
  Weight: 119.25 kg

DRUGS (18)
  1. NOVOLOG [Concomitant]
     Active Substance: INSULIN ASPART
  2. PRAVASTATIN SOD [Concomitant]
  3. SHARK CARTILAGE [Concomitant]
     Active Substance: SHARK CARTILAGE\SHARK, UNSPECIFIED
  4. VITAMIN B12 [Concomitant]
     Active Substance: CYANOCOBALAMIN
  5. NOVOLIN R [Suspect]
     Active Substance: INSULIN HUMAN
     Indication: TYPE 2 DIABETES MELLITUS
     Dosage: ?          QUANTITY:90 UNITS;OTHER FREQUENCY:DIVIDED IN 3 DOSES;?
     Route: 030
     Dates: start: 20151101, end: 20170701
  6. COD LIVER OIL [Concomitant]
     Active Substance: COD LIVER OIL
  7. LANTUS [Suspect]
     Active Substance: INSULIN GLARGINE
     Indication: TYPE 2 DIABETES MELLITUS
     Dosage: ?          QUANTITY:70 UNITS;OTHER ROUTE:INJECTED INTO STOMACH?
     Dates: start: 20120601, end: 20170601
  8. LEVEMIR [Concomitant]
     Active Substance: INSULIN DETEMIR
  9. VITAMIN D [Concomitant]
     Active Substance: CHOLECALCIFEROL
  10. COQ10 [Concomitant]
     Active Substance: UBIDECARENONE
  11. ISOSORBIDE MONONITRATE. [Concomitant]
     Active Substance: ISOSORBIDE MONONITRATE
  12. VITAMIN E [Concomitant]
     Active Substance: .ALPHA.-TOCOPHEROL
  13. LUTEIN [Concomitant]
     Active Substance: LUTEIN
  14. VITAMIN B COMPLEX [Concomitant]
     Active Substance: CYANOCOBALAMIN\DEXPANTHENOL\NIACINAMIDE\PYRIDOXINE HYDROCHLORIDE\RIBOFLAVIN 5^-PHOSPHATE SODIUM\THIAMINE HYDROCHLORIDE\VITAMIN B COMPLEX
  15. GARLIC PILLS [Concomitant]
  16. SPIRONOLACTONE. [Concomitant]
     Active Substance: SPIRONOLACTONE
  17. LISINOPRIL. [Concomitant]
     Active Substance: LISINOPRIL
  18. SHARK LIVER OIL [Concomitant]
     Active Substance: SHARK LIVER OIL

REACTIONS (6)
  - Arthralgia [None]
  - Gait disturbance [None]
  - Limb discomfort [None]
  - Drug effect decreased [None]
  - Pain in extremity [None]
  - Back pain [None]

NARRATIVE: CASE EVENT DATE: 20151101
